FAERS Safety Report 9705320 (Version 2)
Quarter: 2013Q4

REPORT INFORMATION
  Report Type: Report from Study
  Country: US (occurrence: US)
  Receive Date: 20131122
  Receipt Date: 20131213
  Transmission Date: 20140711
  Serious: Yes (Other)
  Sender: FDA-Public Use
  Company Number: US-PURDUE-USA-2013-0108816

PATIENT
  Age: 55 Year
  Sex: Female
  Weight: 65.31 kg

DRUGS (5)
  1. OXY CR TAB [Suspect]
     Indication: PAIN
     Dosage: 30 MG, DAILY
     Route: 048
     Dates: start: 20060712
  2. OXY CR TAB [Suspect]
     Dosage: UNK
     Route: 048
     Dates: start: 201009
  3. ROXICODONE [Concomitant]
     Indication: BREAKTHROUGH PAIN
     Dosage: 30 MG, UNK
     Route: 048
     Dates: start: 20101021
  4. PROAIR                             /00972202/ [Concomitant]
     Indication: BRONCHITIS
     Dosage: 108 MCG, UNK
     Route: 065
     Dates: start: 20101022
  5. MICARDIS HCT [Concomitant]
     Indication: HYPERTENSION
     Dosage: 125 MG, UNK
     Route: 065
     Dates: start: 20101021

REACTIONS (4)
  - Cervix cancer metastatic [Not Recovered/Not Resolved]
  - Metastases to central nervous system [Not Recovered/Not Resolved]
  - Intervertebral disc degeneration [Unknown]
  - Facet joint syndrome [Not Recovered/Not Resolved]
